FAERS Safety Report 8899206 (Version 1)
Quarter: 2012Q4

REPORT INFORMATION
  Report Type: 
  Country: US (occurrence: US)
  Receive Date: 20121109
  Receipt Date: 20121109
  Transmission Date: 20130627
  Serious: No
  Sender: FDA-Public Use
  Company Number: US-009507513-1211USA002911

PATIENT
  Sex: Male

DRUGS (2)
  1. ASMANEX TWISTHALER [Suspect]
     Indication: ASTHMA
     Dosage: 220 Microgram, 1 inhalation qd
     Route: 055
     Dates: start: 201206
  2. PROAIR (ALBUTEROL SULFATE) [Concomitant]

REACTIONS (1)
  - Product quality issue [Unknown]
